FAERS Safety Report 9205903 (Version 2)
Quarter: 2013Q2

REPORT INFORMATION
  Report Type: Spontaneous
  Country: US (occurrence: US)
  Receive Date: 20130403
  Receipt Date: 20130531
  Transmission Date: 20140414
  Serious: Yes (Death, Other)
  Sender: FDA-Public Use
  Company Number: US-JNJFOC-20130313000

PATIENT
  Sex: 0

DRUGS (10)
  1. RISPERIDONE [Suspect]
     Indication: PRODUCT USED FOR UNKNOWN INDICATION
     Route: 065
  2. PALIPERIDONE [Suspect]
     Indication: PRODUCT USED FOR UNKNOWN INDICATION
     Route: 065
  3. HALOPERIDOL [Suspect]
     Indication: PRODUCT USED FOR UNKNOWN INDICATION
     Route: 065
  4. QUETIAPINE [Suspect]
     Indication: PRODUCT USED FOR UNKNOWN INDICATION
     Route: 065
  5. ZIPRASIDONE [Suspect]
     Indication: PRODUCT USED FOR UNKNOWN INDICATION
     Route: 065
  6. CLOZAPINE [Suspect]
     Indication: PRODUCT USED FOR UNKNOWN INDICATION
     Route: 065
  7. ARIPIPRAZOLE [Suspect]
     Indication: PRODUCT USED FOR UNKNOWN INDICATION
     Route: 065
  8. ASENAPINE [Suspect]
     Indication: PRODUCT USED FOR UNKNOWN INDICATION
     Route: 065
  9. LURASIDONE [Suspect]
     Indication: PRODUCT USED FOR UNKNOWN INDICATION
     Route: 065
  10. OLANZAPINE [Suspect]
     Indication: PRODUCT USED FOR UNKNOWN INDICATION
     Route: 065

REACTIONS (48)
  - Hypotension [Unknown]
  - Myocardial depression [Unknown]
  - Electrocardiogram QT prolonged [Unknown]
  - Torsade de pointes [Unknown]
  - Metrorrhagia [Unknown]
  - Gynaecomastia [Unknown]
  - Hyperglycaemia [Unknown]
  - Diabetes mellitus [Unknown]
  - Gastrointestinal motility disorder [Unknown]
  - Urinary retention [Unknown]
  - Ejaculation disorder [Unknown]
  - Priapism [Unknown]
  - Anaphylactic reaction [Unknown]
  - Hypersensitivity [Unknown]
  - Leukopenia [Unknown]
  - Vasodilatation [Unknown]
  - Vision blurred [Unknown]
  - Metabolic syndrome [Unknown]
  - Hypertension [Unknown]
  - Oligomenorrhoea [Unknown]
  - Amenorrhoea [Unknown]
  - Tachycardia [Unknown]
  - Circadian rhythm sleep disorder [Unknown]
  - Sweat gland disorder [Unknown]
  - Weight increased [Unknown]
  - Somnolence [Unknown]
  - Sedation [Unknown]
  - Akathisia [Unknown]
  - Galactorrhoea [Unknown]
  - Nausea [Unknown]
  - Vomiting [Unknown]
  - Dry mouth [Unknown]
  - Miosis [Unknown]
  - Salivary hypersecretion [Unknown]
  - Death [Fatal]
  - Neuroleptic malignant syndrome [Unknown]
  - Agranulocytosis [Unknown]
  - Orthostatic hypotension [Unknown]
  - Hepatotoxicity [Unknown]
  - Myocarditis [Unknown]
  - Coma [Unknown]
  - Respiratory depression [Unknown]
  - Hyperthermia [Unknown]
  - Hypothermia [Unknown]
  - Convulsion [Unknown]
  - Dystonia [Unknown]
  - Parkinsonism [Unknown]
  - Tardive dyskinesia [Unknown]
